FAERS Safety Report 9782362 (Version 3)
Quarter: 2014Q2

REPORT INFORMATION
  Report Type: Report from Study
  Country: IT (occurrence: IT)
  Receive Date: 20131226
  Receipt Date: 20140611
  Transmission Date: 20141212
  Serious: Yes (Hospitalization, Other)
  Sender: FDA-Public Use
  Company Number: PHHO2013IT014131

PATIENT
  Sex: 0

DRUGS (6)
  1. CERTICAN [Suspect]
     Indication: RENAL TRANSPLANT
     Dosage: 0.75 MG, BID
     Route: 048
     Dates: start: 20131020, end: 20131030
  2. NEORAL [Suspect]
     Indication: RENAL TRANSPLANT
     Dosage: 175 MG, BID
     Route: 048
     Dates: start: 20131020, end: 20131023
  3. METHYLPREDNISOLONE [Concomitant]
     Indication: RENAL TRANSPLANT
     Dosage: 16 MG, QD
     Dates: start: 20131020, end: 20131023
  4. AMIODARONE [Concomitant]
     Indication: HYPERTENSION
     Dosage: 200 MG, QD
     Dates: start: 20131019
  5. BISOPROLOL [Concomitant]
     Indication: HYPERTENSION
     Dosage: 1.25 MG, QD
     Dates: start: 20131021
  6. DOXAZOSIN [Concomitant]
     Indication: HYPERTENSION
     Dosage: 2 MG, QD
     Dates: start: 20131023

REACTIONS (2)
  - Renal impairment [Recovered/Resolved with Sequelae]
  - Kidney transplant rejection [Recovered/Resolved]
